FAERS Safety Report 4740411-8 (Version None)
Quarter: 2005Q3

REPORT INFORMATION
  Report Type: 
  Country: None (occurrence: None)
  Receive Date: 20050729
  Receipt Date: 20050110
  Transmission Date: 20060218
  Serious: Yes (Hospitalization)
  Sender: FDA-Public Use
  Company Number: 211482

PATIENT
  Age: 44 Year
  Sex: Male

DRUGS (5)
  1. TNKASE (TENECTEPLASE) PWDER + SOLVENT, INJECTION SOLN, 50MG [Suspect]
     Indication: MYOCARDIAL INFARCTION
     Dates: start: 20041218
  2. INTEGRILIN [Suspect]
  3. HEPARIN [Suspect]
  4. PLAVIX [Concomitant]
  5. ASPIRIN [Concomitant]

REACTIONS (1)
  - CEREBRAL HAEMATOMA [None]
